FAERS Safety Report 4790841-3 (Version None)
Quarter: 2005Q4

REPORT INFORMATION
  Report Type: 
  Country: None (occurrence: None)
  Receive Date: 20051006
  Receipt Date: 20050805
  Transmission Date: 20060501
  Serious: Yes (Hospitalization)
  Sender: FDA-Public Use
  Company Number: DE-ABBOTT-05P-062-0307633-00

PATIENT
  Sex: Male

DRUGS (7)
  1. ERGENYL [Suspect]
     Indication: EPILEPSY
     Dosage: LESS THAN 1200MG/D
     Route: 050
     Dates: start: 20050101
  2. ERGENYL [Suspect]
     Dates: start: 20030101, end: 20050101
  3. ETHOSUXIMIDE [Concomitant]
     Indication: EPILEPSY
     Route: 049
     Dates: start: 20030101
  4. CLOBAZAM [Concomitant]
     Indication: EPILEPSY
     Route: 049
     Dates: start: 20030101
  5. URSODEOXYCHOLIC ACID [Concomitant]
     Indication: CHOLANGITIS
     Route: 049
     Dates: start: 20030101
  6. MESALAMINE [Concomitant]
     Indication: COLITIS ULCERATIVE
     Route: 049
     Dates: start: 20030101
  7. DOMPERIDONE [Concomitant]
     Indication: GASTROOESOPHAGEAL REFLUX DISEASE
     Route: 049
     Dates: start: 20030101

REACTIONS (8)
  - ACIDOSIS [None]
  - CONDITION AGGRAVATED [None]
  - FANCONI SYNDROME ACQUIRED [None]
  - GAMMA-GLUTAMYLTRANSFERASE INCREASED [None]
  - HYPOKALAEMIA [None]
  - HYPOPHOSPHATAEMIA [None]
  - LIPASE INCREASED [None]
  - THROMBOCYTOPENIA [None]
